FAERS Safety Report 4731788-8 (Version None)
Quarter: 2005Q3

REPORT INFORMATION
  Report Type: 
  Country: None (occurrence: None)
  Receive Date: 20050802
  Receipt Date: 20050722
  Transmission Date: 20060218
  Serious: Yes (Other)
  Sender: FDA-Public Use
  Company Number: GB-BRISTOL-MYERS SQUIBB COMPANY-13050323

PATIENT
  Sex: Male

DRUGS (2)
  1. APROVEL [Suspect]
     Indication: BLOOD PRESSURE
  2. CIPROFLOXACIN [Concomitant]

REACTIONS (11)
  - BALANCE DISORDER [None]
  - DISORIENTATION [None]
  - DYSPHONIA [None]
  - EAR PAIN [None]
  - FUNGAL RASH [None]
  - GASTRIC INFECTION [None]
  - NASAL CONGESTION [None]
  - OEDEMA PERIPHERAL [None]
  - RHINITIS [None]
  - VISUAL ACUITY REDUCED [None]
  - VITREOUS FLOATERS [None]
